FAERS Safety Report 18113559 (Version 1)
Quarter: 2020Q3

REPORT INFORMATION
  Report Type: Spontaneous
  Country: US (occurrence: US)
  Receive Date: 20200805
  Receipt Date: 20200805
  Transmission Date: 20201103
  Serious: Yes (Other)
  Sender: FDA-Public Use
  Company Number: US-MYLANLABS-2020M1068784

PATIENT
  Sex: Female
  Weight: 58 kg

DRUGS (1)
  1. ESTRADIOL TRANSDERMAL SYSTEM [Suspect]
     Active Substance: ESTRADIOL
     Indication: MENOPAUSE
     Dosage: 0.0375 MG/DAY, QD
     Route: 062
     Dates: start: 2018

REACTIONS (6)
  - Pain [Not Recovered/Not Resolved]
  - Vulvovaginal dryness [Not Recovered/Not Resolved]
  - Mood swings [Not Recovered/Not Resolved]
  - Product adhesion issue [Unknown]
  - Major depression [Not Recovered/Not Resolved]
  - Insomnia [Not Recovered/Not Resolved]
